FAERS Safety Report 18500556 (Version 1)
Quarter: 2020Q4

REPORT INFORMATION
  Report Type: Spontaneous
  Country: US (occurrence: US)
  Receive Date: 20201112
  Receipt Date: 20201112
  Transmission Date: 20210114
  Serious: No
  Sender: FDA-Public Use
  Company Number: None

PATIENT
  Age: 21 Year
  Sex: Female
  Weight: 46.72 kg

DRUGS (2)
  1. MULTIVITAMINS [Concomitant]
     Active Substance: VITAMINS
  2. KYLEENA [Suspect]
     Active Substance: LEVONORGESTREL
     Dates: start: 20190712

REACTIONS (2)
  - Device malfunction [None]
  - Complication associated with device [None]

NARRATIVE: CASE EVENT DATE: 20201112
